FAERS Safety Report 24856915 (Version 1)
Quarter: 2025Q1

REPORT INFORMATION
  Report Type: Spontaneous
  Country: US (occurrence: US)
  Receive Date: 20250117
  Receipt Date: 20250117
  Transmission Date: 20250409
  Serious: No
  Sender: BRACCO
  Company Number: US-BRACCO-2024US07270

PATIENT
  Age: 57 Year
  Sex: Female

DRUGS (1)
  1. VUEWAY [Suspect]
     Active Substance: GADOPICLENOL
     Indication: Magnetic resonance imaging breast
     Route: 042
     Dates: start: 20241016, end: 20241016

REACTIONS (6)
  - Hypersensitivity [Recovered/Resolved]
  - Headache [Recovered/Resolved]
  - Chills [Recovered/Resolved]
  - Abdominal pain upper [Recovered/Resolved]
  - Diarrhoea [Recovered/Resolved]
  - Spinal pain [Recovered/Resolved]

NARRATIVE: CASE EVENT DATE: 20241016
